FAERS Safety Report 5577611-3 (Version None)
Quarter: 2007Q4

REPORT INFORMATION
  Report Type: 
  Country: None (occurrence: None)
  Receive Date: 20071231
  Receipt Date: 20071221
  Transmission Date: 20080405
  Serious: Yes (Hospitalization)
  Sender: FDA-Public Use
  Company Number: PHBS2007JP21403

PATIENT
  Age: 28 Year
  Sex: Female

DRUGS (4)
  1. RESLIN [Suspect]
     Indication: DEPRESSION
     Dosage: 25 MG, TID
     Route: 048
     Dates: start: 20070901
  2. AMOXAPINE [Suspect]
     Indication: DEPRESSION
     Dosage: 25 MG, TID
     Route: 048
     Dates: start: 20070901
  3. SOLANAX [Suspect]
     Dosage: 0.4 MG, QD
     Route: 048
     Dates: start: 20071028, end: 20071028
  4. TOFRANIL [Suspect]
     Indication: DEPRESSION
     Dosage: 25 MG, TID
     Route: 048
     Dates: start: 20070901

REACTIONS (2)
  - DRUG EXPOSURE DURING PREGNANCY [None]
  - VENTOUSE EXTRACTION [None]
